FAERS Safety Report 24032763 (Version 1)
Quarter: 2024Q3

REPORT INFORMATION
  Report Type: Spontaneous
  Country: US (occurrence: US)
  Receive Date: 20240701
  Receipt Date: 20240701
  Transmission Date: 20241016
  Serious: Yes (Other)
  Sender: BRISTOL MYERS SQUIBB
  Company Number: US-BRISTOL-MYERS SQUIBB COMPANY-2024-102821

PATIENT
  Age: 71 Year
  Sex: Male

DRUGS (4)
  1. POMALYST [Suspect]
     Active Substance: POMALIDOMIDE
     Indication: Plasma cell myeloma recurrent
     Route: 048
     Dates: start: 202405
  2. POMALYST [Suspect]
     Active Substance: POMALIDOMIDE
     Indication: Plasma cell myeloma
  3. FLOMAX [Suspect]
     Active Substance: TAMSULOSIN HYDROCHLORIDE
     Indication: Product used for unknown indication
  4. COLESTIPOL [Suspect]
     Active Substance: COLESTIPOL
     Indication: Diarrhoea

REACTIONS (13)
  - Diarrhoea [Unknown]
  - Muscle fatigue [Unknown]
  - Loss of personal independence in daily activities [Unknown]
  - Urticaria [Unknown]
  - Dyspepsia [Unknown]
  - Rash pruritic [Recovered/Resolved]
  - Dizziness [Unknown]
  - Fatigue [Unknown]
  - Pneumonia [Unknown]
  - Fluid retention [Unknown]
  - Sinusitis [Unknown]
  - Constipation [Unknown]
  - Dyspnoea [Unknown]

NARRATIVE: CASE EVENT DATE: 20240601
